FAERS Safety Report 4392137-0 (Version None)
Quarter: 2004Q3

REPORT INFORMATION
  Report Type: 
  Country: None (occurrence: None)
  Receive Date: 20040702
  Receipt Date: 20040206
  Transmission Date: 20050211
  Serious: Yes (Other)
  Sender: FDA-Public Use
  Company Number: 2004UW02153

PATIENT
  Age: 65 Year
  Sex: Male
  Weight: 94.3482 kg

DRUGS (2)
  1. CRESTOR [Suspect]
     Indication: BLOOD CHOLESTEROL INCREASED
     Dosage: 10 MG PO
     Route: 048
     Dates: end: 20040101
  2. FLONASE [Concomitant]

REACTIONS (2)
  - BODY TEMPERATURE DECREASED [None]
  - MYALGIA [None]
